FAERS Safety Report 8913366 (Version 4)
Quarter: 2013Q2

REPORT INFORMATION
  Report Type: Spontaneous
  Country: US (occurrence: US)
  Receive Date: 20121116
  Receipt Date: 20130401
  Transmission Date: 20140414
  Serious: Yes (Hospitalization, Other)
  Sender: FDA-Public Use
  Company Number: US-ASTRAZENECA-2012SE85477

PATIENT
  Age: 76 Year
  Sex: Female

DRUGS (8)
  1. NEXIUM [Suspect]
     Indication: HIATUS HERNIA
     Route: 048
  2. TOPROL XL [Suspect]
     Route: 048
  3. PRILOSEC [Suspect]
     Indication: HIATUS HERNIA
     Route: 048
  4. PRILOSEC OTC [Suspect]
     Route: 048
  5. TIKOSYN [Concomitant]
     Indication: ATRIAL FIBRILLATION
  6. COUMADIN [Concomitant]
  7. ASPIRIN [Concomitant]
  8. OTHER DRUGS [Concomitant]

REACTIONS (27)
  - Gastrooesophageal reflux disease [Unknown]
  - Post procedural complication [Unknown]
  - Hiatus hernia [Unknown]
  - Ovarian cancer [Unknown]
  - Inguinal hernia [Unknown]
  - Pharyngeal haemorrhage [Recovered/Resolved]
  - Small intestinal obstruction [Unknown]
  - Haemoptysis [Recovered/Resolved]
  - Cholelithiasis [Unknown]
  - Abdominal hernia [Unknown]
  - Pulmonary oedema [Unknown]
  - Coronary artery disease [Unknown]
  - Diverticulum [Unknown]
  - Dysphagia [Recovered/Resolved]
  - Oesophagitis [Unknown]
  - Gastritis [Unknown]
  - Hypertension [Unknown]
  - Pain [Unknown]
  - Gastric disorder [Unknown]
  - Goitre [Unknown]
  - Discomfort [Unknown]
  - Atrial fibrillation [Unknown]
  - Dyspnoea [Unknown]
  - Dyspepsia [Unknown]
  - Abdominal discomfort [Unknown]
  - Drug dose omission [Unknown]
  - Drug ineffective [Unknown]
